FAERS Safety Report 17201590 (Version 1)
Quarter: 2020Q1

REPORT INFORMATION
  Report Type: Spontaneous
  Country: US (occurrence: US)
  Receive Date: 20191224
  Receipt Date: 20191224
  Transmission Date: 20200409
  Serious: Yes (Death)
  Sender: FDA-Public Use
  Company Number: None

PATIENT
  Age: 76 Year
  Sex: Female

DRUGS (6)
  1. JADENU [Suspect]
     Active Substance: DEFERASIROX
     Indication: HAEMOCHROMATOSIS
     Route: 048
     Dates: start: 20191108
  2. CALCITRIOL CAP 0.25MCG [Concomitant]
     Active Substance: CALCITRIOL
  3. ALLOPURINOL TAB 100MG [Concomitant]
  4. RAMIPRIL CAP 10MG [Concomitant]
     Active Substance: RAMIPRIL
  5. FOLIC ACID TAB 100MCG [Concomitant]
  6. EPINASTINE DRO 0.05% [Concomitant]

REACTIONS (1)
  - Death [None]

NARRATIVE: CASE EVENT DATE: 20191219
